FAERS Safety Report 7060051-8 (Version None)
Quarter: 2010Q4

REPORT INFORMATION
  Report Type: 
  Country: None (occurrence: None)
  Receive Date: 20101025
  Receipt Date: 20100806
  Transmission Date: 20110411
  Serious: No
  Sender: FDA-Public Use
  Company Number: US-BRISTOL-MYERS SQUIBB COMPANY-15171663

PATIENT
  Sex: Male

DRUGS (2)
  1. BUSPAR [Suspect]
     Route: 065
  2. NORVIR [Suspect]
     Indication: HIV INFECTION
     Dosage: SOFT GELATIN CAPSULES
     Route: 065

REACTIONS (1)
  - ADVERSE DRUG REACTION [None]
